FAERS Safety Report 5264028-4 (Version None)
Quarter: 2007Q1

REPORT INFORMATION
  Report Type: 
  Country: None (occurrence: None)
  Receive Date: 20070313
  Receipt Date: 20070301
  Transmission Date: 20070707
  Serious: Yes (Hospitalization)
  Sender: FDA-Public Use
  Company Number: FR-PFIZER INC-2007016879

PATIENT
  Age: 59 Year
  Sex: Male

DRUGS (4)
  1. NEURONTIN [Suspect]
     Indication: HERPES ZOSTER
     Route: 048
  2. VALACYCLOVIR HCL [Concomitant]
  3. BACTRIM [Concomitant]
  4. ORACILLINE [Concomitant]

REACTIONS (1)
  - PANCYTOPENIA [None]
